FAERS Safety Report 12703007 (Version 3)
Quarter: 2017Q3

REPORT INFORMATION
  Report Type: Spontaneous
  Country: US (occurrence: US)
  Receive Date: 20160831
  Receipt Date: 20170912
  Transmission Date: 20171127
  Serious: Yes (Other)
  Sender: FDA-Public Use
  Company Number: US-SUN PHARMACEUTICAL INDUSTRIES LTD-2015US-107302

PATIENT
  Age: 66 Year
  Sex: Male

DRUGS (2)
  1. IMIPRAMINE [Suspect]
     Active Substance: IMIPRAMINE
     Indication: PRODUCT USED FOR UNKNOWN INDICATION
     Dosage: UNK
     Route: 065
  2. VIAGRA [Interacting]
     Active Substance: SILDENAFIL CITRATE
     Indication: ERECTILE DYSFUNCTION
     Dosage: UNK
     Route: 048
     Dates: start: 20130112, end: 20130112

REACTIONS (2)
  - Drug interaction [Unknown]
  - IIIrd nerve paralysis [Recovered/Resolved]

NARRATIVE: CASE EVENT DATE: 20130112
